FAERS Safety Report 12251126 (Version 1)
Quarter: 2016Q2

REPORT INFORMATION
  Report Type: Spontaneous
  Country: US (occurrence: US)
  Receive Date: 20160410
  Receipt Date: 20160410
  Transmission Date: 20160815
  Serious: No
  Sender: FDA-Public Use
  Company Number: US-JNJFOC-20160320419

PATIENT
  Age: 70 Year
  Sex: Male
  Weight: 97.52 kg

DRUGS (4)
  1. PEPCID AC MAXIMUM STRENGTH [Suspect]
     Active Substance: FAMOTIDINE
     Indication: HYPERHIDROSIS
     Route: 048
     Dates: start: 20160320, end: 20160320
  2. PEPCID AC MAXIMUM STRENGTH [Suspect]
     Active Substance: FAMOTIDINE
     Indication: MALAISE
     Route: 048
     Dates: start: 20160320, end: 20160320
  3. PEPCID AC MAXIMUM STRENGTH [Suspect]
     Active Substance: FAMOTIDINE
     Indication: NAUSEA
     Route: 048
     Dates: start: 20160320, end: 20160320
  4. PEPCID AC MAXIMUM STRENGTH [Suspect]
     Active Substance: FAMOTIDINE
     Indication: MUSCULOSKELETAL CHEST PAIN
     Route: 048
     Dates: start: 20160320, end: 20160320

REACTIONS (3)
  - Product use issue [Unknown]
  - Off label use [Unknown]
  - Therapeutic response unexpected [Unknown]

NARRATIVE: CASE EVENT DATE: 20160320
